FAERS Safety Report 9549369 (Version 2)
Quarter: 2013Q4

REPORT INFORMATION
  Report Type: Spontaneous
  Country: US (occurrence: US)
  Receive Date: 20130924
  Receipt Date: 20131010
  Transmission Date: 20140711
  Serious: No
  Sender: FDA-Public Use
  Company Number: US-PFIZER INC-2013274630

PATIENT
  Age: 44 Year
  Sex: Male
  Weight: 68.03 kg

DRUGS (1)
  1. LYRICA [Suspect]
     Indication: PELVIC PAIN
     Dosage: 50 MG, UNK
     Route: 048
     Dates: start: 201309, end: 201309

REACTIONS (2)
  - Off label use [Unknown]
  - Hypoaesthesia oral [Unknown]
